FAERS Safety Report 11633637 (Version 2)
Quarter: 2016Q1

REPORT INFORMATION
  Report Type: Report from Study
  Country: US (occurrence: US)
  Receive Date: 20151015
  Receipt Date: 20160127
  Transmission Date: 20160525
  Serious: Yes (Hospitalization)
  Sender: FDA-Public Use
  Company Number: PHEH2015US020385

PATIENT
  Age: 26 Year
  Sex: Male

DRUGS (1)
  1. TOBI PODHALER [Suspect]
     Active Substance: TOBRAMYCIN
     Indication: PRODUCT USED FOR UNKNOWN INDICATION
     Dosage: UNK
     Route: 055
     Dates: start: 20130926

REACTIONS (3)
  - Influenza [Unknown]
  - Blood glucose decreased [Unknown]
  - Cough [Unknown]

NARRATIVE: CASE EVENT DATE: 20160111
